FAERS Safety Report 19969689 (Version 1)
Quarter: 2021Q4

REPORT INFORMATION
  Report Type: Report from Study
  Country: US (occurrence: US)
  Receive Date: 20211019
  Receipt Date: 20211019
  Transmission Date: 20220304
  Serious: Yes (Hospitalization, Other)
  Sender: FDA-Public Use
  Company Number: US-TAIHO ONCOLOGY INC-EU-2021-03248

PATIENT
  Sex: Male
  Weight: 128.94 kg

DRUGS (3)
  1. LONSURF [Suspect]
     Active Substance: TIPIRACIL HYDROCHLORIDE\TRIFLURIDINE
     Indication: Colorectal cancer metastatic
     Dosage: CYCLE UNKNOWN
     Route: 048
     Dates: start: 20210628
  2. STIVARGA [Suspect]
     Active Substance: REGORAFENIB
     Indication: Product used for unknown indication
  3. XELODA [Concomitant]
     Active Substance: CAPECITABINE

REACTIONS (4)
  - Metastases to lung [Unknown]
  - Ascites [Unknown]
  - Nausea [Unknown]
  - Fatigue [Unknown]
